FAERS Safety Report 6433076-0 (Version None)
Quarter: 2009Q4

REPORT INFORMATION
  Report Type: 
  Country: None (occurrence: None)
  Receive Date: 20091109
  Receipt Date: 20091028
  Transmission Date: 20100525
  Serious: Yes (Other)
  Sender: FDA-Public Use
  Company Number: JP-PFIZER INC-2009281405

PATIENT
  Age: 60 Year
  Sex: Male

DRUGS (1)
  1. LINEZOLID [Suspect]
     Indication: INFECTIVE SPONDYLITIS
     Dosage: 1200 MG, DAILY
     Dates: start: 20090221, end: 20090302

REACTIONS (3)
  - CARDIAC FAILURE [None]
  - DRUG ERUPTION [None]
  - PLATELET COUNT DECREASED [None]
